FAERS Safety Report 8419961-9 (Version None)
Quarter: 2012Q2

REPORT INFORMATION
  Report Type: 
  Country: None (occurrence: None)
  Receive Date: 20120607
  Receipt Date: 20120601
  Transmission Date: 20120825
  Serious: Yes (Hospitalization)
  Sender: FDA-Public Use
  Company Number: BR-BAXTER-2012BAX007481

PATIENT
  Sex: Female
  Weight: 74.5 kg

DRUGS (10)
  1. CYCLOPHOSPHAMIDE [Suspect]
     Route: 042
     Dates: start: 20120308
  2. CYCLOPHOSPHAMIDE [Suspect]
     Route: 042
     Dates: start: 20120320
  3. CYCLOPHOSPHAMIDE [Suspect]
     Route: 042
     Dates: start: 20120216
  4. DOXORUBICIN HCL [Suspect]
     Route: 042
     Dates: start: 20120329
  5. DOXORUBICIN HCL [Suspect]
     Route: 042
     Dates: start: 20120308
  6. CYCLOPHOSPHAMIDE [Suspect]
     Route: 042
     Dates: start: 20120126
  7. DOXORUBICIN HCL [Suspect]
     Route: 042
     Dates: start: 20120216
  8. DEXAMETASON [Concomitant]
  9. DOXORUBICIN HCL [Suspect]
     Route: 042
     Dates: start: 20120126
  10. ONDANSETRON HCL [Concomitant]

REACTIONS (3)
  - CHOLESTASIS [None]
  - HEPATOTOXICITY [None]
  - JAUNDICE [None]
